FAERS Safety Report 4773643-3 (Version None)
Quarter: 2005Q3

REPORT INFORMATION
  Report Type: 
  Country: None (occurrence: None)
  Receive Date: 20050914
  Receipt Date: 20041015
  Transmission Date: 20060218
  Serious: Yes (Death)
  Sender: FDA-Public Use
  Company Number: 163-20785-04100449

PATIENT
  Age: 57 Year
  Sex: Female

DRUGS (7)
  1. THALOMID [Suspect]
     Indication: HEPATIC NEOPLASM MALIGNANT
     Dosage: 200 MG, DAILY, ORAL
     Route: 048
     Dates: start: 20040623, end: 20040917
  2. COUMADIN [Concomitant]
  3. VIOXX [Concomitant]
  4. RESTORIL [Concomitant]
  5. FOSAMAX [Concomitant]
  6. DURAGESIC-100 [Concomitant]
  7. OXYCODONE HCL [Concomitant]

REACTIONS (1)
  - DISEASE PROGRESSION [None]
